FAERS Safety Report 5355188-5 (Version None)
Quarter: 2007Q2

REPORT INFORMATION
  Report Type: 
  Country: None (occurrence: None)
  Receive Date: 20070518
  Receipt Date: 20060410
  Transmission Date: 20071010
  Serious: Yes (Hospitalization)
  Sender: FDA-Public Use
  Company Number: HQWYE009027FEB06

PATIENT
  Age: 45 Year
  Sex: Female
  Weight: 92.16 kg

DRUGS (1)
  1. ALESSE [Suspect]
     Dosage: ORAL
     Route: 048

REACTIONS (1)
  - PULMONARY EMBOLISM [None]
